FAERS Safety Report 9492799 (Version 2)
Quarter: 2013Q3

REPORT INFORMATION
  Report Type: Spontaneous
  Country: US (occurrence: US)
  Receive Date: 20130830
  Receipt Date: 20130913
  Transmission Date: 20140515
  Serious: No
  Sender: FDA-Public Use
  Company Number: US-009507513-1308USA013657

PATIENT
  Sex: 0
  Weight: 43.84 kg

DRUGS (1)
  1. NEXPLANON [Suspect]
     Indication: CONTRACEPTION
     Route: 059

REACTIONS (4)
  - Hyperhidrosis [Unknown]
  - Blister [Unknown]
  - Feeling cold [Unknown]
  - Feeling hot [Unknown]
